FAERS Safety Report 5086683-4 (Version None)
Quarter: 2006Q3

REPORT INFORMATION
  Report Type: 
  Country: None (occurrence: None)
  Receive Date: 20060823
  Receipt Date: 20060324
  Transmission Date: 20061208
  Serious: No
  Sender: FDA-Public Use
  Company Number: US-GLAXOSMITHKLINE-A0598955A

PATIENT
  Age: 56 Year
  Sex: Male

DRUGS (5)
  1. MALARONE [Suspect]
     Indication: MALARIA
     Route: 048
     Dates: start: 20060220, end: 20060319
  2. LIPITOR [Suspect]
  3. ALLOPURINOL [Suspect]
  4. OMEPRAZOLE [Concomitant]
  5. UROSEPT [Concomitant]

REACTIONS (5)
  - DROOLING [None]
  - DRY MOUTH [None]
  - DYSARTHRIA [None]
  - SWOLLEN TONGUE [None]
  - TOOTH DISORDER [None]
